FAERS Safety Report 20415913 (Version 1)
Quarter: 2022Q1

REPORT INFORMATION
  Report Type: Spontaneous
  Country: FR (occurrence: FR)
  Receive Date: 20220202
  Receipt Date: 20220202
  Transmission Date: 20220423
  Serious: Yes (Other)
  Sender: FDA-Public Use
  Company Number: None

PATIENT
  Age: 91 Year
  Sex: Female

DRUGS (1)
  1. NITROFURANTOIN [Suspect]
     Active Substance: NITROFURANTOIN
     Indication: Urinary tract infection
     Dosage: MORNING NOON AND EVENING, 2 DOSAGE FORMS
     Route: 048
     Dates: start: 20220103, end: 20220105

REACTIONS (5)
  - Hyperleukocytosis [Recovered/Resolved]
  - Rales [Recovering/Resolving]
  - Oxygen saturation decreased [Recovering/Resolving]
  - Erythema [Recovered/Resolved]
  - Malaise [Recovered/Resolved]

NARRATIVE: CASE EVENT DATE: 20220104
